FAERS Safety Report 20978785 (Version 1)
Quarter: 2022Q2

REPORT INFORMATION
  Report Type: Report from Study
  Country: IT (occurrence: IT)
  Receive Date: 20220619
  Receipt Date: 20220619
  Transmission Date: 20220720
  Serious: Yes (Hospitalization)
  Sender: FDA-Public Use
  Company Number: None

PATIENT
  Age: 79 Year
  Sex: Male

DRUGS (11)
  1. TICLOPIDINE [Suspect]
     Active Substance: TICLOPIDINE
     Indication: Thrombosis prophylaxis
     Dosage: DURATION 352DAYS
     Route: 048
     Dates: start: 20210101, end: 20211219
  2. DILTIAZEM [Concomitant]
     Active Substance: DILTIAZEM
  3. CARDURA [Concomitant]
     Active Substance: DOXAZOSIN MESYLATE
  4. VITAMIN D [Concomitant]
     Active Substance: VITAMIN D NOS
  5. TICLOPIDINE [Concomitant]
     Active Substance: TICLOPIDINE
  6. DILTIAZEM HYDROCHLORIDE [Concomitant]
     Active Substance: DILTIAZEM HYDROCHLORIDE
  7. IRON [Concomitant]
     Active Substance: IRON
  8. FUROSEMIDE [Concomitant]
     Active Substance: FUROSEMIDE
  9. CLONAZEPAM [Concomitant]
     Active Substance: CLONAZEPAM
  10. ALLOPURINOL [Concomitant]
     Active Substance: ALLOPURINOL
  11. FOLIC ACID [Concomitant]
     Active Substance: FOLIC ACID

REACTIONS (1)
  - Rectal haemorrhage [Unknown]

NARRATIVE: CASE EVENT DATE: 20211219
